FAERS Safety Report 8428965 (Version 2)
Quarter: 2013Q1

REPORT INFORMATION
  Report Type: Spontaneous
  Country: JP (occurrence: JP)
  Receive Date: 20120227
  Receipt Date: 20130207
  Transmission Date: 20140127
  Serious: Yes (Other)
  Sender: FDA-Public Use
  Company Number: PHHY2012JP015770

PATIENT
  Age: 90 Year
  Sex: Female

DRUGS (2)
  1. RIVASTIGMINE [Suspect]
     Indication: DEMENTIA ALZHEIMER^S TYPE
     Dosage: 13.5 MG, ONCE A DAY
     Route: 062
     Dates: start: 2011
  2. RIVASTIGMINE [Suspect]
     Dosage: 18 MG, ONCE A DAY
     Route: 062
     Dates: end: 20120120

REACTIONS (1)
  - Loss of consciousness [Recovered/Resolved]
